FAERS Safety Report 4393376-5 (Version None)
Quarter: 2004Q3

REPORT INFORMATION
  Report Type: 
  Country: None (occurrence: None)
  Receive Date: 20040707
  Receipt Date: 20040707
  Transmission Date: 20050211
  Serious: Yes (Hospitalization)
  Sender: FDA-Public Use
  Company Number: None

PATIENT
  Sex: Male

DRUGS (8)
  1. DILTIAZEM [Suspect]
     Indication: ATRIAL FIBRILLATION
     Dosage: 50 MG ONCE INTRAVENOUS
     Route: 042
     Dates: start: 20040331, end: 20040331
  2. TRAZODONE HCL [Concomitant]
  3. THIAMINE [Concomitant]
  4. TERAZOSIN HCL [Concomitant]
  5. FOLIC ACID [Concomitant]
  6. DIGOXIN [Concomitant]
  7. COMBIVENT [Concomitant]
  8. METOPROLOL [Concomitant]

REACTIONS (1)
  - HYPOTENSION [None]
